FAERS Safety Report 19236169 (Version 1)
Quarter: 2021Q2

REPORT INFORMATION
  Report Type: Spontaneous
  Country: US (occurrence: US)
  Receive Date: 20210510
  Receipt Date: 20210510
  Transmission Date: 20210717
  Serious: Yes (Hospitalization, Other)
  Sender: FDA-Public Use
  Company Number: US-LUPIN PHARMACEUTICALS INC.-2021-06407

PATIENT

DRUGS (3)
  1. MORPHINE [Suspect]
     Active Substance: MORPHINE
     Indication: SEDATIVE THERAPY
     Dosage: 0.05 MILLIGRAM/KILOGRAM LOADING DOSE
     Route: 065
  2. MORPHINE [Suspect]
     Active Substance: MORPHINE
     Dosage: 0.005 MILLIGRAM/KILOGRAM EVERY HOUR
     Route: 065
  3. MORPHINE [Suspect]
     Active Substance: MORPHINE
     Dosage: 0.01 MILLIGRAM/KILOGRAM EVERY HOUR MAINTENANCE DOSE
     Route: 065

REACTIONS (1)
  - Neonatal respiratory depression [Unknown]
